FAERS Safety Report 5805470-X (Version None)
Quarter: 2008Q3

REPORT INFORMATION
  Report Type: 
  Country: None (occurrence: None)
  Receive Date: 20080708
  Receipt Date: 20080623
  Transmission Date: 20090109
  Serious: Yes (Other)
  Sender: FDA-Public Use
  Company Number: 235592J08USA

PATIENT
  Age: 50 Year
  Sex: Female
  Weight: 48.0813 kg

DRUGS (9)
  1. REBIF [Suspect]
     Indication: MULTIPLE SCLEROSIS
     Dosage: 44 MCG, 3 IN 1 WEEKS, SUBCUTANEOUS
     Route: 058
     Dates: start: 20070525
  2. LISINOPRIL [Concomitant]
  3. CLONAZEPAM [Concomitant]
  4. XANAX [Concomitant]
  5. TRAZODONE HCL [Concomitant]
  6. BACTROBAN [Concomitant]
  7. KEFLEX [Concomitant]
  8. EVOCLIN (CLINDAMYCIN) [Concomitant]
  9. BENZOYL PEROXIDE WASH (BENZOYL PEROXIDE) [Concomitant]

REACTIONS (1)
  - SQUAMOUS CELL CARCINOMA [None]
